FAERS Safety Report 5999242-3 (Version None)
Quarter: 2008Q4

REPORT INFORMATION
  Report Type: 
  Country: None (occurrence: None)
  Receive Date: 20081211
  Receipt Date: 20081126
  Transmission Date: 20090506
  Serious: Yes (Hospitalization)
  Sender: FDA-Public Use
  Company Number: KV200800703

PATIENT
  Age: 76 Year
  Sex: Female
  Weight: 56.7 kg

DRUGS (7)
  1. ISOSORBIDE MONONITRATE [Suspect]
     Indication: ANGINA PECTORIS
     Dosage: 30 MG, QD, ORAL
     Route: 048
     Dates: start: 20080101
  2. SIMVASTATIN [Concomitant]
  3. ATENOLOL [Concomitant]
  4. LEVOTHYROXINE SODIUM [Concomitant]
  5. NORVASC [Concomitant]
  6. AMLODIPINE [Concomitant]
  7. ATAVERT [Concomitant]

REACTIONS (3)
  - CONDITION AGGRAVATED [None]
  - MENIERE'S DISEASE [None]
  - PRODUCT QUALITY ISSUE [None]
